FAERS Safety Report 6370090-8 (Version None)
Quarter: 2009Q3

REPORT INFORMATION
  Report Type: 
  Country: None (occurrence: None)
  Receive Date: 20090923
  Receipt Date: 20071212
  Transmission Date: 20100115
  Serious: Yes (Other)
  Sender: FDA-Public Use
  Company Number: US-ASTRAZENECA-2006UW21824

PATIENT
  Age: 20445 Day
  Sex: Female
  Weight: 66.2 kg

DRUGS (5)
  1. SEROQUEL [Suspect]
     Dosage: 100 MG - 200 MG
     Route: 048
     Dates: start: 20040608
  2. SEROQUEL [Suspect]
     Route: 048
  3. KLONOPIN [Concomitant]
     Dosage: 1 MG - 5 MG
     Dates: start: 19981122
  4. LUVOX [Concomitant]
     Route: 048
     Dates: start: 20040608
  5. STRATTERA [Concomitant]
     Dates: start: 20040608

REACTIONS (2)
  - HYPERGLYCAEMIA [None]
  - PANCREATITIS [None]
